FAERS Safety Report 8189792-6 (Version None)
Quarter: 2012Q1

REPORT INFORMATION
  Report Type: 
  Country: None (occurrence: None)
  Receive Date: 20120307
  Receipt Date: 20110412
  Transmission Date: 20120608
  Serious: No
  Sender: FDA-Public Use
  Company Number: US-GLAXOSMITHKLINE-A0922693A

PATIENT
  Age: 53 Year
  Sex: Female

DRUGS (5)
  1. SYNTHROID [Concomitant]
  2. EFFEXOR XR [Concomitant]
  3. REQUIP [Suspect]
     Indication: RESTLESS LEGS SYNDROME
     Dosage: 2MG AT NIGHT
     Route: 048
     Dates: start: 20050101
  4. INDERAL [Concomitant]
  5. BLOOD PRESSURE MEDICATION [Concomitant]

REACTIONS (4)
  - LOCAL SWELLING [None]
  - INSOMNIA [None]
  - RASH [None]
  - PREMATURE AGEING [None]
